FAERS Safety Report 25283204 (Version 2)
Quarter: 2025Q3

REPORT INFORMATION
  Report Type: Spontaneous
  Country: US (occurrence: US)
  Receive Date: 20250508
  Receipt Date: 20250910
  Transmission Date: 20251021
  Serious: No
  Sender: INSUD PHARMA
  Company Number: US-INSUD PHARMA-2504US03327

PATIENT

DRUGS (3)
  1. SLYND [Suspect]
     Active Substance: DROSPIRENONE
     Indication: Contraception
     Route: 048
     Dates: start: 202504
  2. SLYND [Suspect]
     Active Substance: DROSPIRENONE
     Indication: Polycystic ovarian syndrome
  3. PROBIOTICS NOS [Concomitant]
     Active Substance: PROBIOTICS NOS

REACTIONS (3)
  - Amenorrhoea [Not Recovered/Not Resolved]
  - Acne [Not Recovered/Not Resolved]
  - Product prescribing issue [Unknown]

NARRATIVE: CASE EVENT DATE: 20250101
